FAERS Safety Report 13073363 (Version 1)
Quarter: 2016Q4

REPORT INFORMATION
  Report Type: Spontaneous
  Country: TR (occurrence: TR)
  Receive Date: 20161229
  Receipt Date: 20161229
  Transmission Date: 20170207
  Serious: Yes (Hospitalization, Congenital Anomaly, Other)
  Sender: FDA-Public Use
  Company Number: TR-IMPAX LABORATORIES, INC-2016-IPXL-02427

PATIENT
  Sex: Male
  Weight: 21 kg

DRUGS (1)
  1. DIVALPROEX SODIUM ER [Suspect]
     Active Substance: DIVALPROEX SODIUM
     Indication: FOETAL EXPOSURE DURING PREGNANCY
     Dosage: 1000 MG, BID
     Route: 064

REACTIONS (6)
  - Respiratory failure [Recovered/Resolved]
  - Cryptorchism [Unknown]
  - Foetal anticonvulsant syndrome [Unknown]
  - Speech disorder developmental [Unknown]
  - Hydrops foetalis [Recovered/Resolved]
  - Foetal exposure during pregnancy [Unknown]
